FAERS Safety Report 5212339-0 (Version None)
Quarter: 2006Q4

REPORT INFORMATION
  Report Type: 
  Country: None (occurrence: None)
  Receive Date: 20061130
  Receipt Date: 20060424
  Transmission Date: 20070319
  Serious: Yes (Disabling)
  Sender: FDA-Public Use
  Company Number: WAES 0604USA03606

PATIENT
  Age: 81 Year
  Sex: Male

DRUGS (4)
  1. FOSAMAX [Suspect]
     Indication: OSTEOPOROSIS
     Dosage: 35 MG/WKY/PO
     Route: 048
     Dates: start: 20041101, end: 20051101
  2. LIPITOR [Concomitant]
  3. PLAVIX [Concomitant]
  4. TOPROL HL [Concomitant]

REACTIONS (1)
  - MYALGIA [None]
